FAERS Safety Report 7319831-3 (Version None)
Quarter: 2011Q1

REPORT INFORMATION
  Report Type: 
  Country: None (occurrence: None)
  Receive Date: 20110228
  Receipt Date: 20101014
  Transmission Date: 20110831
  Serious: No
  Sender: FDA-Public Use
  Company Number: A0886726A

PATIENT
  Age: 24 Year
  Sex: Female

DRUGS (4)
  1. LAMOTRIGINE [Suspect]
     Indication: BIPOLAR DISORDER
     Dosage: 300MG PER DAY
     Route: 048
     Dates: end: 20100825
  2. SUBOXONE [Concomitant]
  3. ADDERALL 10 [Concomitant]
  4. BUPROPION HCL [Suspect]
     Dosage: 150MG TWICE PER DAY
     Route: 048
     Dates: start: 20080722, end: 20100815

REACTIONS (2)
  - DRUG EXPOSURE DURING PREGNANCY [None]
  - DEPRESSION [None]
